FAERS Safety Report 15504733 (Version 1)
Quarter: 2018Q4

REPORT INFORMATION
  Report Type: Spontaneous
  Country: US (occurrence: US)
  Receive Date: 20181016
  Receipt Date: 20181016
  Transmission Date: 20190205
  Serious: No
  Sender: FDA-Public Use
  Company Number: None

PATIENT
  Age: 21 Year
  Sex: Male
  Weight: 90 kg

DRUGS (1)
  1. CREST 3D WHITE [Suspect]
     Active Substance: SODIUM FLUORIDE
     Indication: DENTAL CARE
     Dates: start: 20181013, end: 20181015

REACTIONS (1)
  - Oral mucosal exfoliation [None]

NARRATIVE: CASE EVENT DATE: 20181015
